FAERS Safety Report 8169189-5 (Version None)
Quarter: 2012Q1

REPORT INFORMATION
  Report Type: 
  Country: None (occurrence: None)
  Receive Date: 20120227
  Receipt Date: 20120216
  Transmission Date: 20120608
  Serious: Yes (Disabling)
  Sender: FDA-Public Use
  Company Number: CA-ASTRAZENECA-2011SE13113

PATIENT
  Age: 66 Year
  Sex: Female

DRUGS (11)
  1. NEXIUM [Suspect]
     Route: 048
     Dates: start: 20111205
  2. LIPITOR [Concomitant]
  3. DEXILANT [Concomitant]
     Dates: start: 20101213, end: 20110112
  4. DOMPERIDONE [Concomitant]
     Dates: start: 20110418
  5. CIMETIDINE [Concomitant]
     Dates: start: 20100921, end: 20101212
  6. FAMOTIDINE [Concomitant]
     Dates: start: 20110328, end: 20111205
  7. NEXIUM [Suspect]
     Route: 048
     Dates: end: 20100921
  8. NEXIUM [Suspect]
     Indication: GASTROOESOPHAGEAL REFLUX DISEASE
     Route: 048
     Dates: end: 20101101
  9. NEXIUM [Suspect]
     Route: 048
     Dates: start: 20110113, end: 20110327
  10. NEXIUM [Suspect]
     Route: 048
     Dates: end: 20110101
  11. NEXIUM [Suspect]
     Route: 048
     Dates: start: 20111206

REACTIONS (8)
  - OROPHARYNGEAL PAIN [None]
  - GASTROOESOPHAGEAL REFLUX DISEASE [None]
  - DRUG DOSE OMISSION [None]
  - ABDOMINAL PAIN UPPER [None]
  - ABDOMINAL DISTENSION [None]
  - ABDOMINAL PAIN [None]
  - CONSTIPATION [None]
  - SINUS CONGESTION [None]
